FAERS Safety Report 21434410 (Version 1)
Quarter: 2022Q4

REPORT INFORMATION
  Report Type: Spontaneous
  Country: DE (occurrence: DE)
  Receive Date: 20221010
  Receipt Date: 20221010
  Transmission Date: 20230112
  Serious: No
  Sender: FDA-Public Use
  Company Number: DE-ALKEM LABORATORIES LIMITED-DE-ALKEM-2022-09175

PATIENT
  Age: 27 Year
  Sex: Female
  Weight: 67 kg

DRUGS (3)
  1. IBUPROFEN [Suspect]
     Active Substance: IBUPROFEN
     Indication: Lower limb fracture
     Dosage: 600 MILLIGRAM
     Route: 065
     Dates: start: 20220713, end: 20220731
  2. ENOXAPARIN SODIUM [Suspect]
     Active Substance: ENOXAPARIN SODIUM
     Indication: Prophylaxis
     Dosage: UNK, EVERY 24 HOUR (ENOXAPARIN BECAT 4.000 IE (40 MG)/0,4 ML INJEKTIONSLOSUNG IN EINER  FERTIGSPRITZ
     Route: 065
     Dates: start: 20220722, end: 20220725
  3. Novaminsulfon Tabletten [Concomitant]
     Indication: Pain
     Dosage: 500 MILLIGRAM
     Route: 065
     Dates: start: 20220713, end: 20220731

REACTIONS (3)
  - Injection site haematoma [Recovered/Resolved]
  - Incorrect dose administered [Unknown]
  - Syringe issue [Unknown]

NARRATIVE: CASE EVENT DATE: 20220722
